FAERS Safety Report 21663265 (Version 1)
Quarter: 2022Q4

REPORT INFORMATION
  Report Type: Spontaneous
  Country: FR (occurrence: FR)
  Receive Date: 20221130
  Receipt Date: 20221130
  Transmission Date: 20230113
  Serious: Yes (Other)
  Sender: FDA-Public Use
  Company Number: None

PATIENT
  Age: 32 Year
  Sex: Female
  Weight: 96 kg

DRUGS (3)
  1. XOLAIR [Suspect]
     Active Substance: OMALIZUMAB
     Indication: Asthma
     Route: 058
     Dates: start: 20210728, end: 20210923
  2. APROTININ [Suspect]
     Active Substance: APROTININ
     Indication: Asthma
     Dosage: 5 MG, QD
     Route: 048
  3. SERETIDE [Suspect]
     Active Substance: FLUTICASONE PROPIONATE\SALMETEROL XINAFOATE
     Indication: Asthma
     Dosage: 4 DOSAGE FORM, QD (250/25 MICROGRAMS/ DOSE, SUSPENSION FOR INHALATION IN A PRESSURIZED BOTTLE)
     Route: 055
     Dates: start: 20050622, end: 20210923

REACTIONS (2)
  - Abortion spontaneous [Unknown]
  - Maternal exposure during pregnancy [Unknown]

NARRATIVE: CASE EVENT DATE: 20211101
